FAERS Safety Report 9248322 (Version 1)
Quarter: 2013Q1

REPORT INFORMATION
  Report Type: Spontaneous
  Country: US (occurrence: None)
  Receive Date: 20130305
  Receipt Date: 20130305
  Transmission Date: 20140127
  Serious: Yes (Other)
  Sender: FDA-Public Use
  Company Number: 163-21880-12093176

PATIENT
  Age: 66 Year
  Sex: Male

DRUGS (5)
  1. REVLIMID [Suspect]
     Indication: PLASMA CELL MYELOMA
     Route: 048
     Dates: start: 20120608
  2. METOPROLOL (METOPROLOL) [Concomitant]
  3. VERAPAMIL SR (VERAPAMIL HYDROCHLORIDE) [Concomitant]
  4. ENOXAPARIN (ENOXAPARIN) [Concomitant]
  5. NEUPOGEN (FILGRASTIM) [Concomitant]

REACTIONS (1)
  - Platelet count decreased [None]
